FAERS Safety Report 6299168-4 (Version None)
Quarter: 2009Q3

REPORT INFORMATION
  Report Type: 
  Country: None (occurrence: None)
  Receive Date: 20090806
  Receipt Date: 20090727
  Transmission Date: 20100115
  Serious: Yes (Death, Hospitalization, Other)
  Sender: FDA-Public Use
  Company Number: NSADSS2002027103

PATIENT
  Age: 76 Year
  Sex: Female

DRUGS (7)
  1. REMICADE [Suspect]
     Route: 041
     Dates: start: 20020114
  2. REMICADE [Suspect]
     Route: 041
     Dates: start: 20020114
  3. REMICADE [Suspect]
     Route: 041
     Dates: start: 20020114
  4. REMICADE [Suspect]
     Indication: RHEUMATOID ARTHRITIS
     Route: 041
     Dates: start: 20020114
  5. CILAZAPRIL [Concomitant]
     Indication: HYPERTENSION
     Dates: start: 19990101
  6. NIFEDIPINE [Concomitant]
     Indication: HYPERTENSION
     Route: 048
     Dates: start: 19990101
  7. CALCIUM CHANNEL BLOCKER [Concomitant]

REACTIONS (3)
  - DEATH [None]
  - PULMONARY TUBERCULOSIS [None]
  - TUBERCULOSIS LIVER [None]
